FAERS Safety Report 8371721-3 (Version None)
Quarter: 2012Q2

REPORT INFORMATION
  Report Type: 
  Country: None (occurrence: None)
  Receive Date: 20120518
  Receipt Date: 20120516
  Transmission Date: 20120825
  Serious: Yes (Death)
  Sender: FDA-Public Use
  Company Number: US-ROCHE-1047245

PATIENT
  Sex: Male
  Weight: 49.032 kg

DRUGS (1)
  1. ZELBORAF [Suspect]
     Indication: PRODUCT USED FOR UNKNOWN INDICATION
     Dosage: 2 TABLETS
     Route: 048
     Dates: start: 20111101

REACTIONS (1)
  - INTRACRANIAL TUMOUR HAEMORRHAGE [None]
